FAERS Safety Report 8569544 (Version 2)
Quarter: 2014Q1

REPORT INFORMATION
  Report Type: Spontaneous
  Country: US (occurrence: None)
  Receive Date: 20120323
  Receipt Date: 20140306
  Transmission Date: 20141002
  Serious: Yes (Other)
  Sender: FDA-Public Use
  Company Number: 163-21880-11113381

PATIENT
  Age: 63 Year
  Sex: Female

DRUGS (11)
  1. REVLIMID [Suspect]
     Indication: MYELOFIBROSIS
     Dosage: 5 MG, 1 IN 1 D, PO
     Route: 048
     Dates: start: 201109
  2. ZOLPIDEM [Concomitant]
  3. ACYCLOVIR [Concomitant]
  4. FLUVIRIN NOS [Concomitant]
  5. ATENOLOL (ATENOLOL) [Concomitant]
  6. PAROXETINE (PAROXETINE) [Concomitant]
  7. AMBIEN [Concomitant]
  8. CALCIUM [Concomitant]
  9. VITAMIN B (ERGOCALCIFEROL) [Concomitant]
  10. VITAMIN B12 (CYANOCOBALAMIN) [Concomitant]
  11. DANAZOL [Concomitant]

REACTIONS (2)
  - Haemoglobin decreased [None]
  - Transaminases increased [None]
